FAERS Safety Report 5971778-0 (Version None)
Quarter: 2008Q4

REPORT INFORMATION
  Report Type: 
  Country: None (occurrence: None)
  Receive Date: 20081121
  Receipt Date: 20081106
  Transmission Date: 20090506
  Serious: Yes (Hospitalization)
  Sender: FDA-Public Use
  Company Number: 2008002919

PATIENT
  Age: 53 Year
  Sex: Female
  Weight: 40.8237 kg

DRUGS (2)
  1. ERLOTINIB (ERLOTINIB)(TABLET)(ERLOTINIB) [Suspect]
     Indication: NON-SMALL CELL LUNG CANCER
     Dosage: (150 MG,QD),ORAL
     Route: 048
     Dates: start: 20081015
  2. RAD001 [Suspect]
     Dosage: (5 MG,QD),ORAL
     Route: 048
     Dates: start: 20081015

REACTIONS (3)
  - CYTOLYTIC HEPATITIS [None]
  - FOLLICULITIS [None]
  - MUCOSAL INFLAMMATION [None]
